FAERS Safety Report 7235429-X (Version None)
Quarter: 2011Q1

REPORT INFORMATION
  Report Type: 
  Country: None (occurrence: None)
  Receive Date: 20110114
  Receipt Date: 20110114
  Transmission Date: 20110831
  Serious: Yes (Hospitalization)
  Sender: FDA-Public Use
  Company Number: None

PATIENT
  Age: 23 Year
  Sex: Male

DRUGS (2)
  1. PROGRAF [Suspect]
     Dates: start: 20090731
  2. PROGRAF [Suspect]
     Indication: RENAL FAILURE ACUTE
     Dates: start: 20100114

REACTIONS (4)
  - PRODUCT MEASURED POTENCY ISSUE [None]
  - IMMUNOSUPPRESSANT DRUG LEVEL DECREASED [None]
  - RENAL FAILURE [None]
  - HAEMODIALYSIS [None]
